FAERS Safety Report 8414742-4 (Version None)
Quarter: 2012Q2

REPORT INFORMATION
  Report Type: 
  Country: None (occurrence: None)
  Receive Date: 20120605
  Receipt Date: 20120529
  Transmission Date: 20120825
  Serious: Yes (Other)
  Sender: FDA-Public Use
  Company Number: JP-B.I. PHARMACEUTICALS,INC./RIDGEFIELD-2012-BP-12661NB

PATIENT

DRUGS (1)
  1. MOBIC [Suspect]
     Indication: PAIN
     Route: 048

REACTIONS (1)
  - PLATELET COUNT DECREASED [None]
